FAERS Safety Report 13526372 (Version 1)
Quarter: 2017Q2

REPORT INFORMATION
  Report Type: Spontaneous
  Country: US (occurrence: US)
  Receive Date: 20170509
  Receipt Date: 20170509
  Transmission Date: 20170830
  Serious: Yes (Life-Threatening, Hospitalization, Other)
  Sender: FDA-Public Use
  Company Number: US-SUN PHARMACEUTICAL INDUSTRIES LTD-2017US-139951

PATIENT
  Age: 71 Year
  Sex: Female

DRUGS (1)
  1. ALLOPURINOL. [Suspect]
     Active Substance: ALLOPURINOL
     Indication: GOUT
     Dosage: UNK
     Route: 065

REACTIONS (11)
  - Acute kidney injury [Recovering/Resolving]
  - Hypotension [Recovering/Resolving]
  - Sepsis [Recovering/Resolving]
  - Melaena [Recovered/Resolved]
  - Oesophagitis [Recovering/Resolving]
  - Toxic epidermal necrolysis [Recovering/Resolving]
  - Hypernatraemia [Recovering/Resolving]
  - Hyperglycaemia [Recovering/Resolving]
  - Ileus [Recovering/Resolving]
  - Gastric ulcer [Recovering/Resolving]
  - Diarrhoea [Recovering/Resolving]
